FAERS Safety Report 26111080 (Version 1)
Quarter: 2025Q4

REPORT INFORMATION
  Report Type: Spontaneous
  Country: US (occurrence: None)
  Receive Date: 20251202
  Receipt Date: 20251202
  Transmission Date: 20260118
  Serious: No
  Sender: CHIESI
  Company Number: US-CHIESI-2025CHF06242

PATIENT
  Age: 14 Year
  Sex: Female

DRUGS (1)
  1. LAMZEDE [Suspect]
     Active Substance: VELMANASE ALFA-TYCV
     Indication: Alpha-mannosidosis
     Dosage: 1 MILLIGRAM/KILOGRAM, QW

REACTIONS (13)
  - Pruritus [Unknown]
  - Ear pruritus [Recovered/Resolved]
  - Pruritus [Unknown]
  - Feeling hot [Unknown]
  - Dyspnoea [Unknown]
  - Erythema [Recovered/Resolved]
  - Oropharyngeal pain [Recovered/Resolved]
  - Erythema [Unknown]
  - Urticaria [Unknown]
  - Erythema [Unknown]
  - Oropharyngeal pain [Unknown]
  - Infusion related reaction [Unknown]
  - Infusion related reaction [Unknown]

NARRATIVE: CASE EVENT DATE: 20250801
